FAERS Safety Report 4279000-0 (Version None)
Quarter: 2004Q1

REPORT INFORMATION
  Report Type: 
  Country: None (occurrence: None)
  Receive Date: 20040122
  Receipt Date: 20040122
  Transmission Date: 20041129
  Serious: Yes (Hospitalization)
  Sender: FDA-Public Use
  Company Number: None

PATIENT
  Age: 23 Year
  Sex: Male

DRUGS (2)
  1. TEMOZOLOMIDE [Suspect]
     Indication: MIXED OLIGO-ASTROCYTOMA
     Dosage: 300 MG PO QD
     Route: 048
     Dates: start: 20031210, end: 20031216
  2. TEMOZOLOMIDE [Suspect]
     Indication: MIXED OLIGO-ASTROCYTOMA
     Dosage: 300 MG PO QD
     Route: 048
     Dates: start: 20031229, end: 20031230

REACTIONS (2)
  - HYDROCEPHALUS [None]
  - POST PROCEDURAL COMPLICATION [None]
